FAERS Safety Report 8732361 (Version 3)
Quarter: 2014Q1

REPORT INFORMATION
  Report Type: Report from Study
  Country: JP (occurrence: JP)
  Receive Date: 20120820
  Receipt Date: 20140121
  Transmission Date: 20141002
  Serious: Yes (Hospitalization, Disabling)
  Sender: FDA-Public Use
  Company Number: JP-GLAXOSMITHKLINE-B0813787A

PATIENT
  Age: 19 Year
  Sex: Male
  Weight: 74 kg

DRUGS (70)
  1. REVOLADE [Suspect]
     Indication: IMMUNE THROMBOCYTOPENIC PURPURA
     Route: 048
     Dates: start: 20110416, end: 20120221
  2. REVOLADE [Suspect]
     Indication: IMMUNE THROMBOCYTOPENIC PURPURA
     Route: 048
     Dates: start: 20120222, end: 20120318
  3. REVOLADE [Suspect]
     Indication: IMMUNE THROMBOCYTOPENIC PURPURA
     Route: 048
     Dates: start: 20120319, end: 20120413
  4. REVOLADE [Suspect]
     Indication: IMMUNE THROMBOCYTOPENIC PURPURA
     Route: 048
     Dates: start: 20120414
  5. REVOLADE [Suspect]
     Indication: IMMUNE THROMBOCYTOPENIC PURPURA
     Dosage: 12.5MG PER DAY
     Route: 048
     Dates: start: 20130523, end: 20130701
  6. REVOLADE [Suspect]
     Indication: IMMUNE THROMBOCYTOPENIC PURPURA
     Dosage: 25MG PER DAY
     Route: 048
     Dates: start: 20130702, end: 20130801
  7. NEORAL [Concomitant]
     Indication: IMMUNE THROMBOCYTOPENIC PURPURA
     Route: 048
     Dates: end: 20110622
  8. NEORAL [Concomitant]
     Indication: IMMUNE THROMBOCYTOPENIC PURPURA
     Route: 048
     Dates: start: 20110623, end: 20110706
  9. NEORAL [Concomitant]
     Indication: IMMUNE THROMBOCYTOPENIC PURPURA
     Route: 048
     Dates: start: 20110707, end: 20110727
  10. NEORAL [Concomitant]
     Indication: IMMUNE THROMBOCYTOPENIC PURPURA
     Route: 048
     Dates: start: 20110728, end: 20110819
  11. PREDONINE [Concomitant]
     Indication: IMMUNE THROMBOCYTOPENIC PURPURA
     Route: 048
     Dates: end: 20110429
  12. PREDONINE [Concomitant]
     Indication: IMMUNE THROMBOCYTOPENIC PURPURA
     Route: 048
     Dates: start: 20110430, end: 20110511
  13. PREDONINE [Concomitant]
     Indication: IMMUNE THROMBOCYTOPENIC PURPURA
     Route: 048
     Dates: start: 20110512, end: 20110525
  14. PREDONINE [Concomitant]
     Indication: IMMUNE THROMBOCYTOPENIC PURPURA
     Route: 048
     Dates: start: 20110526, end: 20110608
  15. PREDONINE [Concomitant]
     Indication: IMMUNE THROMBOCYTOPENIC PURPURA
     Route: 048
     Dates: start: 20120225, end: 20120302
  16. PREDONINE [Concomitant]
     Indication: IMMUNE THROMBOCYTOPENIC PURPURA
     Route: 048
     Dates: start: 20120302, end: 20120309
  17. PREDONINE [Concomitant]
     Indication: IMMUNE THROMBOCYTOPENIC PURPURA
     Route: 048
     Dates: start: 20120310, end: 20120314
  18. PREDONINE [Concomitant]
     Indication: IMMUNE THROMBOCYTOPENIC PURPURA
     Route: 048
     Dates: start: 20120315
  19. THEODUR [Concomitant]
     Route: 048
  20. ALFAROL [Concomitant]
     Indication: OSTEOPOROSIS PROPHYLAXIS
     Route: 048
     Dates: end: 20110706
  21. CEPHARANTHINE [Concomitant]
     Indication: IMMUNE THROMBOCYTOPENIC PURPURA
     Route: 048
     Dates: end: 20111110
  22. CEPHARANTHINE [Concomitant]
     Indication: IMMUNE THROMBOCYTOPENIC PURPURA
     Route: 048
     Dates: start: 20111111, end: 20111201
  23. XYZAL [Concomitant]
     Route: 048
     Dates: start: 20110609, end: 20110706
  24. ALESION [Concomitant]
     Route: 048
     Dates: start: 20111021, end: 20120208
  25. SAWACILLIN [Concomitant]
     Indication: INFECTION PROPHYLAXIS
     Route: 048
     Dates: start: 20120304
  26. MUCODYNE [Concomitant]
     Indication: ASTHMA
     Route: 048
     Dates: start: 20130523, end: 20130801
  27. THEOLONG [Concomitant]
     Indication: ASTHMA
     Route: 048
     Dates: start: 20130523, end: 20130801
  28. SINGULAIR [Concomitant]
     Indication: ASTHMA
     Route: 048
     Dates: start: 20130523, end: 20130801
  29. CHINESE MEDICINE [Concomitant]
     Route: 048
     Dates: start: 20130523, end: 20130717
  30. E KEPPRA [Concomitant]
     Route: 048
     Dates: start: 20130522, end: 20130801
  31. FAMOTIDINE D [Concomitant]
     Route: 048
     Dates: start: 20130522, end: 20130704
  32. NEXIUM [Concomitant]
     Route: 048
     Dates: start: 20130705, end: 20130801
  33. RIVOTRIL [Concomitant]
     Route: 048
     Dates: start: 20130521, end: 20130801
  34. POLYMIXIN B SULFATE [Concomitant]
     Route: 048
     Dates: start: 20130610, end: 20130623
  35. KANAMYCIN [Concomitant]
     Route: 048
     Dates: start: 20130625, end: 20130711
  36. FUNGIZONE [Concomitant]
     Route: 048
     Dates: start: 20130711, end: 20130723
  37. CLEANAL [Concomitant]
     Route: 048
     Dates: start: 20130716, end: 20130801
  38. OMEPRAL [Concomitant]
     Dosage: 20MG TWICE PER DAY
     Route: 042
     Dates: start: 20130520, end: 20130521
  39. ALEVIATIN [Concomitant]
     Route: 042
     Dates: start: 20130520, end: 20130520
  40. PROPOFOL [Concomitant]
     Route: 042
     Dates: start: 20130520, end: 20130520
  41. PROPOFOL [Concomitant]
     Route: 042
     Dates: start: 20130521, end: 20130521
  42. PROPOFOL [Concomitant]
     Route: 042
     Dates: start: 20130522, end: 20130522
  43. ZOSYN [Concomitant]
     Dates: start: 20130521, end: 20130524
  44. ZOSYN [Concomitant]
     Dates: start: 20130525, end: 20130529
  45. ZOSYN [Concomitant]
     Dates: start: 20130530, end: 20130530
  46. ZOSYN [Concomitant]
     Dates: start: 20130714, end: 20130726
  47. VANCOMYCIN [Concomitant]
     Route: 042
     Dates: start: 20130615, end: 20130618
  48. VANCOMYCIN [Concomitant]
     Route: 042
     Dates: start: 20130619, end: 20130619
  49. VANCOMYCIN [Concomitant]
     Route: 042
     Dates: start: 20130620, end: 20130621
  50. VANCOMYCIN [Concomitant]
     Route: 042
     Dates: start: 20130622, end: 20130622
  51. VANCOMYCIN [Concomitant]
     Route: 042
     Dates: start: 20130623, end: 20130624
  52. VANCOMYCIN [Concomitant]
     Route: 042
     Dates: start: 20130625, end: 20130625
  53. VANCOMYCIN [Concomitant]
     Route: 042
     Dates: start: 20130626, end: 20130630
  54. VANCOMYCIN [Concomitant]
     Route: 042
     Dates: start: 20130701, end: 20130701
  55. VANCOMYCIN [Concomitant]
     Route: 042
     Dates: start: 20130709, end: 20130709
  56. VANCOMYCIN [Concomitant]
     Route: 042
     Dates: start: 20130710, end: 20130717
  57. VANCOMYCIN [Concomitant]
     Route: 042
     Dates: start: 20130718, end: 20130723
  58. VANCOMYCIN [Concomitant]
     Route: 042
     Dates: start: 20130724, end: 20130726
  59. WYSTAL [Concomitant]
     Route: 042
     Dates: start: 20130622, end: 20130622
  60. WYSTAL [Concomitant]
     Route: 042
     Dates: start: 20130623, end: 20130628
  61. WYSTAL [Concomitant]
     Route: 042
     Dates: start: 20130629, end: 20130629
  62. MAXIPIME [Concomitant]
     Route: 042
     Dates: start: 20130629, end: 20130630
  63. MAXIPIME [Concomitant]
     Route: 042
     Dates: start: 20130701, end: 20130701
  64. MAXIPIME [Concomitant]
     Route: 042
     Dates: start: 20130705, end: 20130712
  65. MAXIPIME [Concomitant]
     Route: 042
     Dates: start: 20130713, end: 20130713
  66. AMIKACIN SULFATE [Concomitant]
     Dates: start: 20130705, end: 20130708
  67. PRODIF [Concomitant]
     Dates: start: 20130709, end: 20130710
  68. PRODIF [Concomitant]
     Dates: start: 20130711, end: 20130726
  69. CEFTAZIDIME [Concomitant]
     Route: 042
     Dates: start: 20130729, end: 20130729
  70. CEFTAZIDIME [Concomitant]
     Route: 042
     Dates: start: 20130730, end: 20130731

REACTIONS (4)
  - Sepsis [Recovered/Resolved]
  - Cerebral infarction [Recovered/Resolved with Sequelae]
  - Anal fistula [Recovered/Resolved]
  - Blepharitis [Recovered/Resolved]
